FAERS Safety Report 5952946-0 (Version None)
Quarter: 2008Q4

REPORT INFORMATION
  Report Type: 
  Country: None (occurrence: None)
  Receive Date: 20081114
  Receipt Date: 20081104
  Transmission Date: 20090506
  Serious: Yes (Hospitalization)
  Sender: FDA-Public Use
  Company Number: US-BIOGENIDEC-2008BI027634

PATIENT
  Age: 63 Year
  Sex: Female
  Weight: 64 kg

DRUGS (11)
  1. AVONEX [Suspect]
     Indication: MULTIPLE SCLEROSIS
     Route: 030
     Dates: start: 20051007, end: 20071101
  2. AVONEX [Suspect]
     Route: 030
     Dates: start: 20081031
  3. ATENOLOL [Concomitant]
     Indication: HYPERTENSION
  4. HYDROCHLOROTHIAZIDE [Concomitant]
     Indication: HYPERTENSION
  5. CARBAMAZEPINE [Concomitant]
     Indication: TRIGEMINAL NEURALGIA
  6. POTASSIUM CHLORIDE [Concomitant]
     Indication: DRUG USE FOR UNKNOWN INDICATION
  7. IBUPROFEN TABLETS [Concomitant]
     Indication: ARTHRALGIA
  8. IBUPROFEN TABLETS [Concomitant]
     Indication: HEADACHE
  9. ALBUTEROL [Concomitant]
     Indication: ASTHMA
  10. SPIRIVA [Concomitant]
     Indication: ASTHMA
  11. ASPIRIN [Concomitant]
     Indication: DRUG USE FOR UNKNOWN INDICATION

REACTIONS (6)
  - ABDOMINAL PAIN UPPER [None]
  - COLON CANCER [None]
  - CONTUSION [None]
  - INJECTION SITE PAIN [None]
  - NAUSEA [None]
  - WEIGHT DECREASED [None]
